FAERS Safety Report 8606312-X (Version None)
Quarter: 2012Q3

REPORT INFORMATION
  Report Type: 
  Country: None (occurrence: None)
  Receive Date: 20120820
  Receipt Date: 20120810
  Transmission Date: 20120928
  Serious: Yes (Other)
  Sender: FDA-Public Use
  Company Number: GB-ASTRAZENECA-2011SE56303

PATIENT
  Age: 32 Year
  Sex: Female

DRUGS (9)
  1. SEROQUEL XR [Suspect]
     Indication: DEPRESSION
     Route: 048
     Dates: start: 20110323, end: 20110910
  2. PROPRANOLOL [Suspect]
     Indication: ANXIETY
     Route: 048
     Dates: start: 20090505
  3. FLUOXETINE HCL [Suspect]
     Indication: DEPRESSION
     Route: 048
     Dates: start: 20100621, end: 20111004
  4. PROPRANOLOL [Suspect]
     Indication: PALPITATIONS
     Route: 048
     Dates: start: 20090505
  5. OMEPRAZOLE [Suspect]
     Indication: DYSPEPSIA
     Route: 048
     Dates: start: 20080919
  6. CITALOPRAM HYDROBROMIDE [Suspect]
     Indication: DEPRESSION
     Route: 048
     Dates: start: 20111004
  7. SEROQUEL XR [Suspect]
     Indication: ANXIETY
     Route: 048
     Dates: start: 20110323, end: 20110910
  8. CHLORPROMAZINE HCL [Suspect]
     Indication: ANXIETY
     Route: 048
     Dates: start: 20110922
  9. DIHYDROCODEINE BITARTRATE INJ [Suspect]
     Indication: PAIN
     Dosage: 30 MG 2 PER DAY
     Route: 048
     Dates: start: 20100315

REACTIONS (2)
  - MATERNAL EXPOSURE DURING PREGNANCY [None]
  - PRE-ECLAMPSIA [None]
